FAERS Safety Report 12599027 (Version 1)
Quarter: 2016Q3

REPORT INFORMATION
  Report Type: Spontaneous
  Country: US (occurrence: US)
  Receive Date: 20160727
  Receipt Date: 20160727
  Transmission Date: 20161109
  Serious: No
  Sender: FDA-Public Use
  Company Number: US-MYLANLABS-2015M1020728

PATIENT
  Sex: Female
  Weight: 64.85 kg

DRUGS (15)
  1. KYOLIC [Concomitant]
     Indication: ANTIOXIDANT THERAPY
     Dosage: 1200 MG, QD
     Dates: start: 1998
  2. RANITIDINE. [Concomitant]
     Active Substance: RANITIDINE
     Indication: GASTROOESOPHAGEAL REFLUX DISEASE
     Dosage: 150 MG, QID
     Dates: start: 2005
  3. RANITIDINE. [Concomitant]
     Active Substance: RANITIDINE
     Indication: ACQUIRED OESOPHAGEAL WEB
  4. KEPPRA [Concomitant]
     Active Substance: LEVETIRACETAM
     Indication: EPILEPSY
     Dosage: 500 MG, BID
  5. PAROXETINE. [Concomitant]
     Active Substance: PAROXETINE
     Indication: DEPRESSION
     Dosage: 20 MG, HS
     Dates: start: 20150127
  6. TRAMADOL. [Suspect]
     Active Substance: TRAMADOL
     Indication: PAIN
     Dosage: 30 MG, BID
     Dates: start: 2012
  7. GLUCOSAMINE + CHONDROITIN          /01430901/ [Concomitant]
     Indication: MYALGIA
     Dosage: 1000 MG, BID
     Dates: start: 1998
  8. VITAMIN E                          /00110501/ [Concomitant]
     Active Substance: TOCOPHEROL
     Dosage: 200 MG, QD
     Dates: start: 2006
  9. GLUCOSAMINE + CHONDROITIN          /01430901/ [Concomitant]
     Indication: ARTHRALGIA
  10. CLARITIN [Concomitant]
     Active Substance: LORATADINE
     Indication: HYPERSENSITIVITY
     Dosage: 1 DFQ DAY , PRN
     Dates: start: 2012
  11. FISH OIL [Concomitant]
     Active Substance: FISH OIL
     Dosage: 2000 MG, QD
     Dates: start: 2003
  12. WARFARIN [Concomitant]
     Active Substance: WARFARIN
     Indication: ANTICOAGULANT THERAPY
     Dosage: UNK
     Dates: start: 1998
  13. MULTIVITAMIN                       /00097801/ [Concomitant]
     Active Substance: VITAMINS
     Dosage: 1 DF, QD
     Dates: start: 2003
  14. ASPIRIN                            /00002701/ [Concomitant]
     Active Substance: ASPIRIN
     Indication: ANTICOAGULANT THERAPY
     Dosage: 81 MG, UNK
     Dates: start: 2004
  15. CLORAZEPATE [Concomitant]
     Active Substance: CLORAZEPATE DIPOTASSIUM
     Indication: EPILEPSY
     Dosage: 3.75 MG, BID
     Dates: start: 1991

REACTIONS (1)
  - Drug ineffective [Not Recovered/Not Resolved]
